FAERS Safety Report 6388527-7 (Version None)
Quarter: 2009Q4

REPORT INFORMATION
  Report Type: 
  Country: None (occurrence: None)
  Receive Date: 20091005
  Receipt Date: 20090930
  Transmission Date: 20100525
  Serious: Yes (Other)
  Sender: FDA-Public Use
  Company Number: B0596245A

PATIENT
  Age: 36 Year
  Sex: Male

DRUGS (4)
  1. PAROXETINE HCL [Suspect]
     Indication: ANXIETY
     Dosage: 20MG PER DAY
     Route: 048
     Dates: start: 20090701
  2. SEROQUEL [Concomitant]
     Route: 065
  3. VALIUM [Concomitant]
     Route: 065
  4. AROPAX [Concomitant]
     Route: 065
     Dates: end: 20090101

REACTIONS (5)
  - ABNORMAL BEHAVIOUR [None]
  - AGGRESSION [None]
  - ANGER [None]
  - MOOD ALTERED [None]
  - PHYSICAL ASSAULT [None]
